FAERS Safety Report 17709292 (Version 1)
Quarter: 2020Q2

REPORT INFORMATION
  Report Type: Spontaneous
  Country: US (occurrence: US)
  Receive Date: 20200426
  Receipt Date: 20200426
  Transmission Date: 20200714
  Serious: Yes (Other)
  Sender: FDA-Public Use
  Company Number: US-ASTRAZENECA-2020SE54047

PATIENT
  Sex: Male
  Weight: 89.8 kg

DRUGS (16)
  1. VITAMIN B12 [Concomitant]
     Active Substance: CYANOCOBALAMIN
     Indication: ANAEMIA
     Route: 048
  2. MULTIVITAMIN [Concomitant]
     Active Substance: VITAMINS
     Indication: SUPPLEMENTATION THERAPY
     Dosage: DAILY
     Route: 048
  3. TUMERIC [Concomitant]
     Active Substance: HERBALS\TURMERIC
     Indication: SUPPLEMENTATION THERAPY
     Route: 048
     Dates: start: 2017
  4. WARFARIN [Concomitant]
     Active Substance: WARFARIN
     Indication: ATRIAL FIBRILLATION
     Dosage: 2 TABLETS ON SUNDAY, WEDNESDAY AND FRIDAY AND 1 TABLET ON OTHER DAYS,A TOTAL OF 11 TABLETS A WEEK...
     Route: 048
     Dates: start: 2017
  5. WARFARIN [Concomitant]
     Active Substance: WARFARIN
     Indication: THROMBOSIS
     Dosage: 2 TABLETS ON SUNDAY, WEDNESDAY AND FRIDAY AND 1 TABLET ON OTHER DAYS,A TOTAL OF 11 TABLETS A WEEK...
     Route: 048
     Dates: start: 2017
  6. MAGNESIUM OXIDE. [Concomitant]
     Active Substance: MAGNESIUM OXIDE
     Indication: ATRIAL FIBRILLATION
     Route: 048
  7. CALQUENCE [Suspect]
     Active Substance: ACALABRUTINIB
     Indication: MANTLE CELL LYMPHOMA
     Route: 048
     Dates: start: 202002
  8. METOPROLOL TARTRATE. [Concomitant]
     Active Substance: METOPROLOL TARTRATE
     Indication: ATRIAL FIBRILLATION
     Route: 048
  9. VITAMIN C [Concomitant]
     Active Substance: ASCORBIC ACID
     Indication: SUPPLEMENTATION THERAPY
     Route: 048
     Dates: start: 2000
  10. OPIUM TINCTURE PAREGORIC [Concomitant]
     Indication: ABDOMINAL DISCOMFORT
     Dosage: AS REQUIRED
     Route: 048
     Dates: start: 2012
  11. CALQUENCE [Suspect]
     Active Substance: ACALABRUTINIB
     Indication: MANTLE CELL LYMPHOMA
     Route: 048
     Dates: start: 20200417
  12. ALLOPURINOL. [Concomitant]
     Active Substance: ALLOPURINOL
     Indication: PLASMA CELL MYELOMA
     Route: 048
  13. OXYCODONE [Concomitant]
     Active Substance: OXYCODONE
     Indication: DIARRHOEA
     Dosage: 10.0MG AS REQUIRED
     Route: 048
  14. PILOCARPINE. [Concomitant]
     Active Substance: PILOCARPINE
     Indication: DRY MOUTH
     Route: 048
     Dates: start: 2016
  15. TAMSULOSIN [Concomitant]
     Active Substance: TAMSULOSIN
     Indication: BENIGN PROSTATIC HYPERPLASIA
     Route: 048
     Dates: start: 2017
  16. ZYRTEC [Concomitant]
     Active Substance: CETIRIZINE HYDROCHLORIDE
     Indication: MULTIPLE ALLERGIES
     Route: 048
     Dates: start: 2010

REACTIONS (9)
  - Hypertension [Not Recovered/Not Resolved]
  - Atrial fibrillation [Unknown]
  - Dry mouth [Not Recovered/Not Resolved]
  - Headache [Recovering/Resolving]
  - Dyspnoea [Recovered/Resolved]
  - Atrial flutter [Unknown]
  - Anxiety [Unknown]
  - Nausea [Recovering/Resolving]
  - Discomfort [Unknown]
